FAERS Safety Report 18852932 (Version 6)
Quarter: 2021Q4

REPORT INFORMATION
  Report Type: Spontaneous
  Country: US (occurrence: US)
  Receive Date: 20210205
  Receipt Date: 20211216
  Transmission Date: 20220303
  Serious: Yes (Other)
  Sender: FDA-Public Use
  Company Number: US-CELGENE-USA-20210200916

PATIENT
  Sex: Male
  Weight: 86.260 kg

DRUGS (2)
  1. REVLIMID [Suspect]
     Active Substance: LENALIDOMIDE
     Indication: Plasma cell myeloma
     Dosage: 25 MILLIGRAM
     Route: 048
     Dates: start: 20200425
  2. REVLIMID [Suspect]
     Active Substance: LENALIDOMIDE
     Indication: Plasmacytoma
     Dosage: 10 MILLIGRAM
     Route: 048
     Dates: start: 20201112

REACTIONS (4)
  - Ear neoplasm malignant [Unknown]
  - Skin cancer [Not Recovered/Not Resolved]
  - Basal cell carcinoma [Recovering/Resolving]
  - Nausea [Not Recovered/Not Resolved]
